FAERS Safety Report 7557888-5 (Version None)
Quarter: 2011Q2

REPORT INFORMATION
  Report Type: 
  Country: None (occurrence: None)
  Receive Date: 20110620
  Receipt Date: 20110527
  Transmission Date: 20111010
  Serious: Yes (Hospitalization)
  Sender: FDA-Public Use
  Company Number: A0865961A

PATIENT
  Age: 64 Year
  Sex: Male
  Weight: 108.2 kg

DRUGS (23)
  1. XANAX [Concomitant]
  2. METOPROLOL TARTRATE [Concomitant]
  3. FISH OIL [Concomitant]
  4. ASPIRIN [Concomitant]
  5. NORVASC [Concomitant]
  6. RESTORIL [Concomitant]
  7. HUMULIN R [Concomitant]
  8. PLAVIX [Concomitant]
  9. VYTORIN [Concomitant]
  10. OXYCODONE HCL AND ACETAMINOPHEN [Concomitant]
  11. HUMALOG [Concomitant]
  12. LEXAPRO [Concomitant]
  13. DIOVAN HCT [Concomitant]
  14. PRINIVIL [Concomitant]
  15. SYNTHROID [Concomitant]
  16. AVANDIA [Suspect]
     Dates: end: 20080701
  17. POTASSIUM CHLORIDE [Concomitant]
  18. AVODART [Concomitant]
  19. LOPRESSOR [Concomitant]
  20. IMDUR [Concomitant]
  21. BENICAR [Concomitant]
  22. TRICOR [Concomitant]
  23. DIOVAN [Concomitant]

REACTIONS (3)
  - MYOCARDIAL INFARCTION [None]
  - ANGINA PECTORIS [None]
  - CORONARY ARTERY DISEASE [None]
